FAERS Safety Report 23188163 (Version 2)
Quarter: 2024Q1

REPORT INFORMATION
  Report Type: Spontaneous
  Country: US (occurrence: US)
  Receive Date: 20231115
  Receipt Date: 20240207
  Transmission Date: 20240410
  Serious: No
  Sender: FDA-Public Use
  Company Number: US-PFIZER INC-PV202300184363

PATIENT
  Age: 81 Year
  Sex: Male

DRUGS (2)
  1. XELJANZ [Suspect]
     Active Substance: TOFACITINIB CITRATE
     Dosage: UNK
  2. COVID-19 VACCINE [Concomitant]
     Dosage: UNK
     Dates: start: 202310

REACTIONS (2)
  - Trigger finger [Unknown]
  - Lip swelling [Unknown]
